FAERS Safety Report 24663968 (Version 1)
Quarter: 2024Q4

REPORT INFORMATION
  Report Type: Spontaneous
  Country: FR (occurrence: FR)
  Receive Date: 20241126
  Receipt Date: 20241126
  Transmission Date: 20250115
  Serious: Yes (Death)
  Sender: RANBAXY
  Company Number: FR-SUN PHARMACEUTICAL INDUSTRIES LTD-2024RR-480445

PATIENT
  Age: 78 Year
  Sex: Male

DRUGS (1)
  1. MORPHINE [Suspect]
     Active Substance: MORPHINE
     Indication: Palliative care
     Dosage: 5 MILLIGRAM
     Route: 040
     Dates: start: 20241005, end: 20241006

REACTIONS (5)
  - Wrong rate [Fatal]
  - Overdose [Fatal]
  - Product administration error [Fatal]
  - Circumstance or information capable of leading to medication error [Fatal]
  - Death [Fatal]

NARRATIVE: CASE EVENT DATE: 20241006
